FAERS Safety Report 22128510 (Version 2)
Quarter: 2024Q2

REPORT INFORMATION
  Report Type: Report from Study
  Country: FR (occurrence: FR)
  Receive Date: 20230323
  Receipt Date: 20240615
  Transmission Date: 20240715
  Serious: Yes (Other)
  Sender: FDA-Public Use
  Company Number: FR-ABBVIE-4148556

PATIENT
  Age: 69 Year
  Sex: Male
  Weight: 73 kg

DRUGS (4)
  1. UPADACITINIB [Suspect]
     Active Substance: UPADACITINIB
     Indication: Rheumatoid arthritis
     Dosage: 15 MILLIGRAM
     Route: 048
     Dates: start: 20211210
  2. METHOTREXATE [Concomitant]
     Active Substance: METHOTREXATE
     Indication: Rheumatoid arthritis
     Route: 058
     Dates: start: 1996, end: 20220601
  3. FLUOROURACIL [Concomitant]
     Active Substance: FLUOROURACIL
     Indication: Bowen^s disease
     Route: 061
     Dates: start: 20221127, end: 20221226
  4. LAMISIL [Concomitant]
     Active Substance: TERBINAFINE HYDROCHLORIDE
     Indication: Tinea cruris
     Route: 061
     Dates: start: 20221115, end: 20221125

REACTIONS (2)
  - Bowen^s disease [Not Recovered/Not Resolved]
  - Tinea cruris [Recovered/Resolved]

NARRATIVE: CASE EVENT DATE: 20220515
